FAERS Safety Report 4323744-9 (Version None)
Quarter: 2004Q1

REPORT INFORMATION
  Report Type: 
  Country: None (occurrence: None)
  Receive Date: 20040323
  Receipt Date: 20040316
  Transmission Date: 20041129
  Serious: Yes (Hospitalization)
  Sender: FDA-Public Use
  Company Number: 2004SE01513

PATIENT
  Age: 86 Year
  Sex: Male
  Weight: 75 kg

DRUGS (1)
  1. SEROQUEL [Suspect]
     Indication: DEMENTIA
     Dates: end: 20040126

REACTIONS (2)
  - HEPATITIS TOXIC [None]
  - JAUNDICE CHOLESTATIC [None]
